FAERS Safety Report 9455928 (Version 1)
Quarter: 2013Q3

REPORT INFORMATION
  Report Type: Spontaneous
  Country: FR (occurrence: FR)
  Receive Date: 20130813
  Receipt Date: 20130813
  Transmission Date: 20140515
  Serious: Yes (Death)
  Sender: FDA-Public Use
  Company Number: FR-ROCHE-1260264

PATIENT
  Age: 62 Year
  Sex: Female

DRUGS (11)
  1. HERCEPTIN [Suspect]
     Indication: BREAST CANCER RECURRENT
     Dosage: A SINGLE DOSE
     Route: 042
     Dates: start: 20130521, end: 20130521
  2. TAXOL [Suspect]
     Indication: BREAST CANCER RECURRENT
     Dosage: 1 CYCLE
     Route: 042
     Dates: start: 20130521, end: 20130528
  3. PROFENID [Concomitant]
  4. LYRICA [Concomitant]
  5. INEXIUM [Concomitant]
  6. SKENAN [Concomitant]
  7. ACTISKENAN [Concomitant]
  8. LOVENOX [Concomitant]
  9. DEXCHLORPHENIRAMINE [Concomitant]
     Route: 042
     Dates: start: 20130528
  10. METHYLPREDNISOLONE [Concomitant]
     Route: 042
     Dates: start: 20130528
  11. GRANISETRON [Concomitant]
     Route: 042
     Dates: start: 20130528

REACTIONS (1)
  - Encephalopathy [Fatal]
